FAERS Safety Report 6244890-9 (Version None)
Quarter: 2009Q2

REPORT INFORMATION
  Report Type: 
  Country: None (occurrence: None)
  Receive Date: 20090625
  Receipt Date: 20090619
  Transmission Date: 20091009
  Serious: Yes (Hospitalization, Other)
  Sender: FDA-Public Use
  Company Number: US-TEVA-199294USA

PATIENT
  Sex: Female

DRUGS (1)
  1. QUININE SULFATE [Suspect]
     Indication: MUSCLE SPASMS
     Dates: start: 20010101, end: 20080101

REACTIONS (1)
  - RENAL FAILURE [None]
